FAERS Safety Report 19406058 (Version 2)
Quarter: 2022Q3

REPORT INFORMATION
  Report Type: Spontaneous
  Country: US (occurrence: US)
  Receive Date: 20210611
  Receipt Date: 20220914
  Transmission Date: 20221027
  Serious: Yes (Other)
  Sender: FDA-Public Use
  Company Number: US-SA-2021SA195526

PATIENT
  Age: 40 Year
  Sex: Female

DRUGS (1)
  1. RANITIDINE HYDROCHLORIDE [Suspect]
     Active Substance: RANITIDINE HYDROCHLORIDE
     Indication: Dyspepsia
     Dosage: 150 MG, QD
     Dates: start: 200601, end: 201801

REACTIONS (2)
  - Bladder cancer stage II [Unknown]
  - Breast cancer stage IV [Unknown]

NARRATIVE: CASE EVENT DATE: 20100501
